FAERS Safety Report 6215860-1 (Version None)
Quarter: 2009Q2

REPORT INFORMATION
  Report Type: 
  Country: None (occurrence: None)
  Receive Date: 20090605
  Receipt Date: 20090527
  Transmission Date: 20091009
  Serious: No
  Sender: FDA-Public Use
  Company Number: JP-JNJFOC-20090505414

PATIENT
  Sex: Male

DRUGS (2)
  1. CRAVIT [Suspect]
     Indication: PROSTATITIS
     Route: 048
  2. BETNOVATE [Concomitant]
     Indication: BALANOPOSTHITIS
     Dosage: AS NEEDED
     Route: 062

REACTIONS (1)
  - CONJUNCTIVAL HYPERAEMIA [None]
